FAERS Safety Report 5516840-1 (Version None)
Quarter: 2007Q4

REPORT INFORMATION
  Report Type: 
  Country: None (occurrence: None)
  Receive Date: 20071109
  Receipt Date: 20071026
  Transmission Date: 20080405
  Serious: Yes (Other)
  Sender: FDA-Public Use
  Company Number: 2007S1011123

PATIENT
  Age: 33 Year
  Sex: Male
  Weight: 97 kg

DRUGS (2)
  1. LISINOPRIL [Suspect]
     Indication: HYPERTENSION
     Dosage: DAILY; ORAL
     Route: 048
     Dates: start: 20060307, end: 20060314
  2. RAMIPRIL [Suspect]
     Indication: HYPERTENSION
     Dosage: DAILY; ORAL
     Route: 048
     Dates: start: 20040902, end: 20050513

REACTIONS (2)
  - AFFECTIVE DISORDER [None]
  - IRRITABILITY [None]
